FAERS Safety Report 17361024 (Version 6)
Quarter: 2020Q3

REPORT INFORMATION
  Report Type: Report from Study
  Country: US (occurrence: US)
  Receive Date: 20200203
  Receipt Date: 20200707
  Transmission Date: 20201102
  Serious: Yes (Other)
  Sender: FDA-Public Use
  Company Number: US-PFIZER INC-2020046796

PATIENT
  Age: 60 Year
  Sex: Female

DRUGS (1)
  1. IBRANCE [Suspect]
     Active Substance: PALBOCICLIB
     Indication: BREAST CANCER FEMALE
     Dosage: 125 MG, CYCLIC (ONCE DAILY ON A CYCLE OF 21 DAYS ON, 7 DAYS OFF)
     Route: 048
     Dates: start: 20200108

REACTIONS (6)
  - Neutrophil count decreased [Not Recovered/Not Resolved]
  - Rhinorrhoea [Unknown]
  - Myelosuppression [Not Recovered/Not Resolved]
  - White blood cell count decreased [Not Recovered/Not Resolved]
  - Alopecia [Unknown]
  - Eye discharge [Unknown]

NARRATIVE: CASE EVENT DATE: 2020
